FAERS Safety Report 26087278 (Version 1)
Quarter: 2025Q4

REPORT INFORMATION
  Report Type: Spontaneous
  Country: US (occurrence: None)
  Receive Date: 20251124
  Receipt Date: 20251124
  Transmission Date: 20260118
  Serious: Yes (Other)
  Sender: FDA-CTU
  Company Number: None

PATIENT
  Age: 76 Year
  Sex: Male

DRUGS (18)
  1. TREMFYA [Suspect]
     Active Substance: GUSELKUMAB
     Indication: Crohn^s disease
     Dosage: OTHER FREQUENCY : ONCE  ON WK 0,4, AND 8;?
     Route: 058
     Dates: start: 20251104
  2. ATORVASTATIN CALCIUM [Concomitant]
     Active Substance: ATORVASTATIN CALCIUM
  3. CALCITRIOL 0.25MCG CAPSULES [Concomitant]
  4. GABAPENTIN [Concomitant]
     Active Substance: GABAPENTIN
  5. LISINOPRIL [Concomitant]
     Active Substance: LISINOPRIL
  6. MORPHINE SULFATE [Concomitant]
     Active Substance: MORPHINE SULFATE
  7. OMEPRAZOLE [Concomitant]
     Active Substance: OMEPRAZOLE
  8. OXYCODONE 10MG ER TABLETS [Concomitant]
  9. AMLODIPINE BESYLATE [Concomitant]
     Active Substance: AMLODIPINE BESYLATE
  10. TIZANIDINE 2MG CAPSULES [Concomitant]
  11. TAMSULOSIN [Concomitant]
     Active Substance: TAMSULOSIN
  12. SPIRONOLACTONE [Concomitant]
     Active Substance: SPIRONOLACTONE
  13. OXYCODONE 10MG ER TABLETS [Concomitant]
  14. CENTRUM SILVER 50+MEN TABLETS [Concomitant]
  15. L-METHYLFOLATE 15MG TABLETS [Concomitant]
  16. MAGNESIUM 500MG TABLETS [Concomitant]
  17. MELATONIN 2.5MG CHEWABLE GUMMIES [Concomitant]
  18. TYLENOL 500MG (ACETAMINOPHEN) [Concomitant]

REACTIONS (1)
  - Intestinal obstruction [None]

NARRATIVE: CASE EVENT DATE: 20251122
